FAERS Safety Report 13490467 (Version 2)
Quarter: 2017Q2

REPORT INFORMATION
  Report Type: Spontaneous
  Country: JP (occurrence: JP)
  Receive Date: 20170427
  Receipt Date: 20170515
  Transmission Date: 20170830
  Serious: Yes (Hospitalization)
  Sender: FDA-Public Use
  Company Number: JP-SA-2017SA075764

PATIENT
  Age: 72 Year
  Sex: Male

DRUGS (5)
  1. LANSOPRAZOLE OD [Suspect]
     Active Substance: LANSOPRAZOLE
     Route: 048
  2. JANUVIA [Concomitant]
     Active Substance: SITAGLIPTIN PHOSPHATE
     Route: 048
     Dates: end: 20170423
  3. GLACTIV [Suspect]
     Active Substance: SITAGLIPTIN
     Route: 065
  4. RENIVACE [Suspect]
     Active Substance: ENALAPRIL
     Route: 048
  5. LANTUS [Suspect]
     Active Substance: INSULIN GLARGINE
     Dosage: DOSE:14 UNIT(S)
     Route: 058
     Dates: end: 20170423

REACTIONS (2)
  - Femoral neck fracture [Unknown]
  - Hypoglycaemia [Unknown]
